FAERS Safety Report 24189010 (Version 1)
Quarter: 2024Q3

REPORT INFORMATION
  Report Type: Spontaneous
  Country: US (occurrence: US)
  Receive Date: 20240808
  Receipt Date: 20240808
  Transmission Date: 20241017
  Serious: No
  Sender: OTSUKA
  Company Number: US-OTSUKA-2023_025663

PATIENT
  Age: 15 Year
  Sex: Male

DRUGS (20)
  1. ARIPIPRAZOLE [Suspect]
     Active Substance: ARIPIPRAZOLE
     Indication: Obsessive-compulsive disorder
     Dosage: UNK
     Route: 065
  2. ARIPIPRAZOLE [Suspect]
     Active Substance: ARIPIPRAZOLE
     Indication: Social anxiety disorder
  3. ARIPIPRAZOLE [Suspect]
     Active Substance: ARIPIPRAZOLE
     Indication: Attention deficit hyperactivity disorder
  4. ARIPIPRAZOLE [Suspect]
     Active Substance: ARIPIPRAZOLE
     Indication: Major depression
  5. SERTRALINE [Concomitant]
     Active Substance: SERTRALINE HYDROCHLORIDE
     Indication: Social anxiety disorder
     Route: 065
  6. SERTRALINE [Concomitant]
     Active Substance: SERTRALINE HYDROCHLORIDE
     Indication: Attention deficit hyperactivity disorder
  7. SERTRALINE [Concomitant]
     Active Substance: SERTRALINE HYDROCHLORIDE
     Indication: Obsessive-compulsive disorder
  8. SERTRALINE [Concomitant]
     Active Substance: SERTRALINE HYDROCHLORIDE
     Indication: Major depression
  9. DULOXETINE [Concomitant]
     Active Substance: DULOXETINE
     Indication: Social anxiety disorder
     Dosage: UNK
     Route: 065
  10. DULOXETINE [Concomitant]
     Active Substance: DULOXETINE
     Indication: Attention deficit hyperactivity disorder
  11. DULOXETINE [Concomitant]
     Active Substance: DULOXETINE
     Indication: Obsessive-compulsive disorder
  12. DULOXETINE [Concomitant]
     Active Substance: DULOXETINE
     Indication: Major depression
  13. LAMOTRIGINE [Concomitant]
     Active Substance: LAMOTRIGINE
     Indication: Social anxiety disorder
     Dosage: UNK
     Route: 065
  14. LAMOTRIGINE [Concomitant]
     Active Substance: LAMOTRIGINE
     Indication: Attention deficit hyperactivity disorder
  15. LAMOTRIGINE [Concomitant]
     Active Substance: LAMOTRIGINE
     Indication: Obsessive-compulsive disorder
  16. LAMOTRIGINE [Concomitant]
     Active Substance: LAMOTRIGINE
     Indication: Major depression
  17. LITHIUM [Concomitant]
     Active Substance: LITHIUM
     Indication: Social anxiety disorder
     Dosage: UNK
     Route: 065
  18. LITHIUM [Concomitant]
     Active Substance: LITHIUM
     Indication: Attention deficit hyperactivity disorder
  19. LITHIUM [Concomitant]
     Active Substance: LITHIUM
     Indication: Obsessive-compulsive disorder
  20. LITHIUM [Concomitant]
     Active Substance: LITHIUM
     Indication: Major depression

REACTIONS (1)
  - Product use in unapproved indication [Unknown]
